FAERS Safety Report 11420125 (Version 1)
Quarter: 2015Q3

REPORT INFORMATION
  Report Type: Spontaneous
  Country: JP (occurrence: JP)
  Receive Date: 20150826
  Receipt Date: 20150826
  Transmission Date: 20151125
  Serious: Yes (Hospitalization)
  Sender: FDA-Public Use
  Company Number: JP-GLAXOSMITHKLINE INC.-JP2015JPN091220

PATIENT
  Age: 18 Year
  Sex: Male

DRUGS (1)
  1. RELVAR ELLIPTA [Suspect]
     Active Substance: FLUTICASONE FUROATE\VILANTEROL TRIFENATATE
     Indication: ASTHMA
     Dosage: 100 ?G, QD
     Route: 055
     Dates: start: 20150530, end: 20150623

REACTIONS (6)
  - Abnormal behaviour [Unknown]
  - Abnormal behaviour [Unknown]
  - Elevated mood [Unknown]
  - Decreased appetite [Unknown]
  - Screaming [Unknown]
  - Elevated mood [Unknown]

NARRATIVE: CASE EVENT DATE: 201506
